FAERS Safety Report 4295426-3 (Version None)
Quarter: 2004Q1

REPORT INFORMATION
  Report Type: 
  Country: None (occurrence: None)
  Receive Date: 20040211
  Receipt Date: 20040130
  Transmission Date: 20041129
  Serious: Yes (Hospitalization, Other)
  Sender: FDA-Public Use
  Company Number: HQWYE758730JAN04

PATIENT
  Age: 34 Month
  Sex: Male

DRUGS (1)
  1. CHILDREN'S ADVIL [Suspect]
     Indication: PYREXIA
     Dosage: UNKNOWN AMOUNT EVERY 4-5 HOURS, ORAL
     Route: 048
     Dates: start: 20021026, end: 20021028

REACTIONS (3)
  - EYELID OEDEMA [None]
  - OTITIS MEDIA ACUTE [None]
  - UPPER RESPIRATORY TRACT INFECTION [None]
